FAERS Safety Report 17556192 (Version 1)
Quarter: 2020Q1

REPORT INFORMATION
  Report Type: Spontaneous
  Country: US (occurrence: US)
  Receive Date: 20200311
  Receipt Date: 20200311
  Transmission Date: 20200409
  Serious: Yes (Hospitalization)
  Sender: FDA-Public Use
  Company Number: None

PATIENT
  Sex: Male
  Weight: 15.8 kg

DRUGS (1)
  1. GLEEVEC [Suspect]
     Active Substance: IMATINIB MESYLATE

REACTIONS (17)
  - Venoocclusive liver disease [None]
  - Constipation [None]
  - Ocular icterus [None]
  - Abdominal pain [None]
  - Anxiety [None]
  - Nausea [None]
  - Lethargy [None]
  - Platelet count decreased [None]
  - Hypophagia [None]
  - Decreased appetite [None]
  - Anaemia [None]
  - Portal hypertension [None]
  - Tachycardia [None]
  - Ileus [None]
  - Diarrhoea [None]
  - Somnolence [None]
  - Weight decreased [None]

NARRATIVE: CASE EVENT DATE: 20200220
